FAERS Safety Report 13351918 (Version 1)
Quarter: 2017Q1

REPORT INFORMATION
  Report Type: Spontaneous
  Country: US (occurrence: US)
  Receive Date: 20170320
  Receipt Date: 20170320
  Transmission Date: 20170429
  Serious: No
  Sender: FDA-Public Use
  Company Number: US-SA-2016SA189532

PATIENT
  Age: 71 Year
  Sex: Female

DRUGS (1)
  1. NASACORT ALLERGY 24HR [Suspect]
     Active Substance: TRIAMCINOLONE ACETONIDE
     Indication: NASAL CONGESTION
     Dosage: DOSE AND FREQUENCY: 55 MCG/ ACTUATION AT A FREQUENCY OF 2 SPRAYS PER NOSTRIL.
     Route: 045
     Dates: start: 20161006, end: 20161011

REACTIONS (2)
  - Facial pain [Not Recovered/Not Resolved]
  - Sinus pain [Not Recovered/Not Resolved]
